FAERS Safety Report 8179293-3 (Version None)
Quarter: 2012Q1

REPORT INFORMATION
  Report Type: 
  Country: None (occurrence: None)
  Receive Date: 20120229
  Receipt Date: 20120229
  Transmission Date: 20120608
  Serious: Yes (Other)
  Sender: FDA-Public Use
  Company Number: None

PATIENT
  Sex: Male
  Weight: 58.514 kg

DRUGS (13)
  1. RELAFEN [Concomitant]
  2. ICAPS [Concomitant]
  3. TOPROL-XL [Concomitant]
  4. GLUCOSAMINE/CHONDRATIN [Concomitant]
  5. VALERIAN HERB [Concomitant]
  6. SPIRIVA [Concomitant]
  7. LIPITOR [Concomitant]
  8. NORVASC [Concomitant]
  9. MULTI-VITAMIN [Concomitant]
  10. ADVAIR INHALANT [Concomitant]
  11. NEXIUM [Concomitant]
  12. MUCINEX [Concomitant]
  13. DALIRESP [Suspect]
     Indication: CHRONIC OBSTRUCTIVE PULMONARY DISEASE
     Dosage: 500 MCGS ONCE DAILY ORAL
     Route: 048
     Dates: start: 20120101, end: 20120111

REACTIONS (4)
  - INTRAOCULAR PRESSURE INCREASED [None]
  - WEIGHT DECREASED [None]
  - FEELING JITTERY [None]
  - AGITATION [None]
